FAERS Safety Report 9307514 (Version 2)
Quarter: 2013Q3

REPORT INFORMATION
  Report Type: Spontaneous
  Country: US (occurrence: US)
  Receive Date: 20130524
  Receipt Date: 20130717
  Transmission Date: 20140515
  Serious: No
  Sender: FDA-Public Use
  Company Number: US-009507513-1305USA013943

PATIENT
  Age: 24 Year
  Sex: Female
  Weight: 71 kg

DRUGS (1)
  1. PEGINTRON [Suspect]
     Indication: HEPATITIS C
     Dosage: 0.080 MG, QW
     Route: 058
     Dates: start: 20130503

REACTIONS (7)
  - Injection site erythema [Unknown]
  - Injection site warmth [Unknown]
  - Injection site pain [Unknown]
  - Injection site mass [Unknown]
  - Erythema [Recovered/Resolved]
  - Skin warm [Recovered/Resolved]
  - Pain [Recovered/Resolved]
